FAERS Safety Report 18588273 (Version 3)
Quarter: 2021Q1

REPORT INFORMATION
  Report Type: Spontaneous
  Country: CA (occurrence: CA)
  Receive Date: 20201208
  Receipt Date: 20210228
  Transmission Date: 20210419
  Serious: Yes (Other)
  Sender: FDA-Public Use
  Company Number: CA-AMGEN-CANSP2020198468

PATIENT
  Sex: Female

DRUGS (1)
  1. ENBREL [Suspect]
     Active Substance: ETANERCEPT
     Indication: RHEUMATOID ARTHRITIS
     Dosage: DOSAGE INFORMATION NOT AVAILABLE/DISCONTINUED
     Route: 065

REACTIONS (3)
  - Stress [Unknown]
  - Sciatica [Unknown]
  - Rheumatoid arthritis [Unknown]
